FAERS Safety Report 9322918 (Version 2)
Quarter: 2013Q4

REPORT INFORMATION
  Report Type: Spontaneous
  Country: US (occurrence: US)
  Receive Date: 20130601
  Receipt Date: 20131004
  Transmission Date: 20140711
  Serious: Yes (Hospitalization, Disabling, Other)
  Sender: FDA-Public Use
  Company Number: US-ASTRAZENECA-2013SE38688

PATIENT
  Age: 66 Year
  Sex: Male
  Weight: 83.9 kg

DRUGS (22)
  1. NEXIUM [Suspect]
     Indication: DYSPEPSIA
     Route: 048
  2. NEXIUM [Suspect]
     Indication: GASTROOESOPHAGEAL REFLUX DISEASE
     Route: 048
  3. PRILOSEC [Suspect]
     Route: 048
     Dates: start: 20090630
  4. PRILOSEC OTC [Suspect]
     Route: 048
  5. PREVACID [Suspect]
     Indication: GASTROOESOPHAGEAL REFLUX DISEASE
     Route: 065
  6. PREVACID [Suspect]
     Indication: DYSPEPSIA
     Route: 065
  7. PREVACID [Suspect]
     Indication: GASTROOESOPHAGEAL REFLUX DISEASE
     Dosage: OTC
     Route: 065
  8. PREVACID [Suspect]
     Indication: DYSPEPSIA
     Dosage: OTC
     Route: 065
  9. NOPAIN [Suspect]
     Route: 065
  10. MORPHINE [Suspect]
     Route: 065
  11. PEPCID OTC [Concomitant]
  12. TUMS [Concomitant]
  13. ROLAIDS [Concomitant]
  14. MYLANTA [Concomitant]
  15. MILK OF MAGNESIA [Concomitant]
  16. METFORMIN [Concomitant]
     Indication: DIABETES MELLITUS
  17. TYLENOL [Concomitant]
     Indication: PAIN
  18. LISINOPRIL [Concomitant]
     Indication: BLOOD PRESSURE ABNORMAL
  19. SIMVASTATIN [Concomitant]
     Indication: BLOOD CHOLESTEROL ABNORMAL
  20. FLOMAX [Concomitant]
     Indication: RENAL DISORDER
  21. LOVENOX [Concomitant]
  22. CELEBREX [Concomitant]

REACTIONS (13)
  - Arthropathy [Unknown]
  - Oesophageal disorder [Unknown]
  - Sleep apnoea syndrome [Unknown]
  - Osteoarthritis [Unknown]
  - Arthrofibrosis [Unknown]
  - Osteoporosis [Unknown]
  - Bone disorder [Unknown]
  - Multiple fractures [Unknown]
  - Diabetes mellitus [Unknown]
  - Arthritis [Unknown]
  - Arthropod sting [Unknown]
  - Pruritus [Unknown]
  - Pain [Unknown]
